FAERS Safety Report 6738219-7 (Version None)
Quarter: 2010Q2

REPORT INFORMATION
  Report Type: 
  Country: None (occurrence: None)
  Receive Date: 20100524
  Receipt Date: 20100513
  Transmission Date: 20101027
  Serious: Yes (Hospitalization)
  Sender: FDA-Public Use
  Company Number: A0787975A

PATIENT
  Age: 49 Year
  Sex: Female
  Weight: 127.3 kg

DRUGS (1)
  1. AVANDIA [Suspect]
     Dosage: 8MG PER DAY
     Route: 048
     Dates: end: 20070801

REACTIONS (3)
  - ARTERIOSPASM CORONARY [None]
  - HYPERTENSION [None]
  - MYOCARDIAL INFARCTION [None]
